FAERS Safety Report 9242129 (Version 1)
Quarter: 2013Q2

REPORT INFORMATION
  Report Type: Spontaneous
  Country: US (occurrence: US)
  Receive Date: 20130419
  Receipt Date: 20130419
  Transmission Date: 20140414
  Serious: Yes (Other)
  Sender: FDA-Public Use
  Company Number: US-INCYTE CORPORATION-2013IN000734

PATIENT
  Age: 77 Year
  Sex: Male

DRUGS (1)
  1. JAKAFI [Suspect]
     Indication: MYELOFIBROSIS
     Dosage: 10 MG, BID
     Route: 048
     Dates: start: 20110421

REACTIONS (5)
  - Cardiac pacemaker insertion [Unknown]
  - Muscle spasms [Recovered/Resolved]
  - Dry skin [Unknown]
  - Restless legs syndrome [Unknown]
  - Insomnia [Unknown]
